FAERS Safety Report 9377072 (Version 1)
Quarter: 2013Q2

REPORT INFORMATION
  Report Type: Spontaneous
  Country: US (occurrence: None)
  Receive Date: 20130628
  Receipt Date: 20130628
  Transmission Date: 20140414
  Serious: Yes (Other)
  Sender: FDA-Public Use
  Company Number: None

PATIENT
  Age: 81 Year
  Sex: Female
  Weight: 58.97 kg

DRUGS (4)
  1. XARELTO (RIVAROXABAN) LICENSED FROM BAYERHEALTHCARE AG LEVERKUSEN, GERMANY, LANSSEN [Suspect]
     Indication: ANTICOAGULANT THERAPY
     Dosage: 1 PILL 15MG TWICE DAILY MOUTH
     Route: 048
     Dates: start: 20130415, end: 20130611
  2. BLOOD PRESSURE PILLS [Concomitant]
  3. CHOLESTEROL PILL [Concomitant]
  4. MULTI VITAMIN [Concomitant]

REACTIONS (2)
  - Urticaria [None]
  - Laryngeal disorder [None]
